FAERS Safety Report 5164669-9 (Version None)
Quarter: 2006Q4

REPORT INFORMATION
  Report Type: 
  Country: None (occurrence: None)
  Receive Date: 20061205
  Receipt Date: 20061114
  Transmission Date: 20070319
  Serious: Yes (Life-Threatening)
  Sender: FDA-Public Use
  Company Number: JP-AVENTIS-200613571JP

PATIENT
  Age: 66 Year
  Sex: Male

DRUGS (2)
  1. AMARYL [Suspect]
     Indication: DIABETES MELLITUS
     Dosage: DOSE: 2 TABLETS/DAY
     Route: 048
     Dates: start: 20050621
  2. METFORMIN HCL [Concomitant]
     Indication: DIABETES MELLITUS
     Dosage: DOSE: 2 TABLETS/DAY
     Route: 048
     Dates: start: 20041201

REACTIONS (1)
  - MYELODYSPLASTIC SYNDROME [None]
